FAERS Safety Report 8422804-0 (Version None)
Quarter: 2012Q2

REPORT INFORMATION
  Report Type: 
  Country: None (occurrence: None)
  Receive Date: 20120608
  Receipt Date: 20120601
  Transmission Date: 20120825
  Serious: Yes (Disabling, Other)
  Sender: FDA-Public Use
  Company Number: US-MERCK-0707USA02692

PATIENT
  Age: 53 Year
  Sex: Female
  Weight: 79 kg

DRUGS (9)
  1. EFFEXOR [Concomitant]
     Indication: DEPRESSION
     Route: 065
     Dates: start: 20030101
  2. TRAZODONE HYDROCHLORIDE [Concomitant]
     Indication: SLEEP DISORDER
     Route: 065
     Dates: start: 20010101
  3. ZOMETA [Suspect]
     Route: 065
  4. FOSAMAX [Suspect]
     Indication: OSTEOPOROSIS
     Route: 048
     Dates: start: 20040301, end: 20060606
  5. HYDROCODONE BITARTRATE [Concomitant]
     Indication: PAIN
     Route: 065
     Dates: start: 20000101
  6. FOSAMAX [Suspect]
     Indication: OSTEOPENIA
     Route: 048
     Dates: start: 20040301, end: 20060606
  7. PROZAC [Concomitant]
     Indication: DEPRESSION
     Route: 065
     Dates: start: 20030101
  8. PRINIVIL [Concomitant]
     Indication: HYPERTENSION
     Route: 065
     Dates: start: 19900101
  9. SYNTHROID [Concomitant]
     Indication: HYPOTHYROIDISM
     Route: 065

REACTIONS (23)
  - DEPRESSION [None]
  - PAIN [None]
  - INSOMNIA RELATED TO ANOTHER MENTAL CONDITION [None]
  - LUMBAR RADICULOPATHY [None]
  - UPPER RESPIRATORY TRACT INFECTION [None]
  - OSTEONECROSIS [None]
  - CELLULITIS [None]
  - CONJUNCTIVITIS [None]
  - DYSURIA [None]
  - ABDOMINAL PAIN UPPER [None]
  - OSTEOMYELITIS [None]
  - FISTULA [None]
  - SPONDYLOLISTHESIS [None]
  - RADIUS FRACTURE [None]
  - MYALGIA [None]
  - OTITIS MEDIA [None]
  - ROTATOR CUFF SYNDROME [None]
  - GROIN PAIN [None]
  - BACK PAIN [None]
  - TREATMENT NONCOMPLIANCE [None]
  - OSTEONECROSIS OF JAW [None]
  - FALL [None]
  - HEADACHE [None]
